FAERS Safety Report 4981907-3 (Version None)
Quarter: 2006Q2

REPORT INFORMATION
  Report Type: 
  Country: None (occurrence: None)
  Receive Date: 20060424
  Receipt Date: 20060424
  Transmission Date: 20061013
  Serious: Yes (Other)
  Sender: FDA-Public Use
  Company Number: None

PATIENT
  Sex: Male
  Weight: 190.6 kg

DRUGS (6)
  1. BEVACIZUMAB 25 MG/ML GENENTECH [Suspect]
     Indication: PANCREATIC CARCINOMA
     Dosage: 15MG/KG Q 21-DAYS IV DRIP
     Route: 041
     Dates: start: 20060315, end: 20060405
  2. ERLOTINIB 150 MG DOSE GENENTECH [Suspect]
     Indication: PANCREATIC CARCINOMA
     Dosage: 150 MG 1-DAY PO
     Route: 048
     Dates: start: 20060315, end: 20060405
  3. IBUPROFEN [Concomitant]
  4. PROTONIX [Concomitant]
  5. REGLAN [Concomitant]
  6. CLEOCIN T [Concomitant]

REACTIONS (3)
  - BLOOD SODIUM DECREASED [None]
  - CHEST PAIN [None]
  - DYSPNOEA [None]
